FAERS Safety Report 5312761-8 (Version None)
Quarter: 2007Q2

REPORT INFORMATION
  Report Type: 
  Country: None (occurrence: None)
  Receive Date: 20070430
  Receipt Date: 20070405
  Transmission Date: 20071010
  Serious: Yes (Hospitalization)
  Sender: FDA-Public Use
  Company Number: CA-BOEHRINGER INGELHEIM GMBH, GERMANY-2007-CN-00282CN

PATIENT
  Sex: Male

DRUGS (9)
  1. TIPRANAVIR + RITONAVIR CO-ADMIN [Suspect]
     Indication: HIV TEST POSITIVE
     Dosage: 1000MG TPV / UNKNOWN DOSING FOR RITONAVIR
  2. TENOFOVIR [Concomitant]
  3. LAMIVUDINE [Concomitant]
  4. CRESTOR [Concomitant]
  5. ASPIRIN [Concomitant]
  6. FENOFIBRATE [Concomitant]
  7. HYDROCHLOROTHIAZIDE [Concomitant]
  8. LEVOTHYROXINE SODIUM [Concomitant]
  9. HUMULIN 70/30 [Concomitant]

REACTIONS (1)
  - CHOLECYSTITIS [None]
